FAERS Safety Report 8962388 (Version 1)
Quarter: 2012Q4

REPORT INFORMATION
  Report Type: Spontaneous
  Country: US (occurrence: None)
  Receive Date: 20121211
  Receipt Date: 20121211
  Transmission Date: 20130627
  Serious: Yes (Hospitalization)
  Sender: FDA-Public Use
  Company Number: None

PATIENT
  Age: 85 Year
  Sex: Female
  Weight: 87.2 kg

DRUGS (6)
  1. DECITABINE [Suspect]
     Indication: MDS
     Dosage: 0.2mg/kg 3x/wk sub-q inj
     Route: 058
     Dates: start: 20110802, end: 20120810
  2. DOXYCYCLINE [Concomitant]
  3. LISINOPRIL [Concomitant]
  4. AMLODIPINE [Concomitant]
  5. TYLENOL [Concomitant]
  6. ACYCLOVIR [Concomitant]

REACTIONS (4)
  - Pyrexia [None]
  - Oedema peripheral [None]
  - Erythema [None]
  - Drug hypersensitivity [None]
